FAERS Safety Report 14368700 (Version 3)
Quarter: 2018Q2

REPORT INFORMATION
  Report Type: Spontaneous
  Country: US (occurrence: US)
  Receive Date: 20180109
  Receipt Date: 20180424
  Transmission Date: 20180711
  Serious: Yes (Other)
  Sender: FDA-Public Use
  Company Number: US-PFIZER INC-2017340087

PATIENT
  Age: 10 Year
  Sex: Male
  Weight: 47 kg

DRUGS (17)
  1. DIAZEPAM. [Concomitant]
     Active Substance: DIAZEPAM
     Dosage: 2 MG, 2X/DAY
     Route: 048
     Dates: start: 20170519
  2. POLYETHYLENE GLYCOL 3350. [Concomitant]
     Active Substance: POLYETHYLENE GLYCOL 3350
     Dosage: UNK
  3. ACEBUTOLOL HCL [Concomitant]
     Active Substance: ACEBUTOLOL
     Dosage: 400 MG, 1X/DAY
     Route: 048
  4. NASONEX [Concomitant]
     Active Substance: MOMETASONE FUROATE
     Dosage: 50 UG, UNK
     Route: 055
     Dates: start: 20151002
  5. GENOTROPIN [Suspect]
     Active Substance: SOMATROPIN
     Indication: GROWTH HORMONE DEFICIENCY
     Dosage: 0.6 MG, DAILY( NIGHLTY)
     Route: 058
     Dates: start: 20101124
  6. LAMICTAL [Concomitant]
     Active Substance: LAMOTRIGINE
     Dosage: 100 MG, 2X/DAY
     Route: 048
     Dates: start: 20170221
  7. ROZEREM [Concomitant]
     Active Substance: RAMELTEON
     Dosage: UNK (4 MG)
     Route: 048
     Dates: start: 20160606
  8. ZOLOFT [Concomitant]
     Active Substance: SERTRALINE HYDROCHLORIDE
     Dosage: 200 MG, DAILY
     Route: 048
     Dates: start: 20160606
  9. VITAMIN D3 [Concomitant]
     Active Substance: CHOLECALCIFEROL
     Dosage: 400 IU, UNK
     Route: 048
     Dates: start: 20151120
  10. GEODON [Concomitant]
     Active Substance: ZIPRASIDONE HYDROCHLORIDE\ZIPRASIDONE MESYLATE
     Dosage: 20 MG, 2X/DAY(7AM AND 2 PM)
     Route: 048
     Dates: start: 20170421
  11. ACETYLCYSTEINE POWDER [Concomitant]
     Dosage: 600 MG, 3X/DAY
     Dates: start: 20170519
  12. BOTOX [Concomitant]
     Active Substance: ONABOTULINUMTOXINA
     Dosage: 200 IU, UNK
     Dates: start: 20180308
  13. CLONIDINE HCL [Concomitant]
     Active Substance: CLONIDINE HYDROCHLORIDE
     Dosage: 0.2 MG, 1X/DAY(AT BEDTIME)
     Route: 048
     Dates: start: 20160204
  14. LACTOBACILLUS EXTRA STRENGHT [Concomitant]
     Dosage: UNK
     Route: 048
     Dates: start: 20170421
  15. SENNA [Concomitant]
     Active Substance: SENNA LEAF\SENNOSIDES\SENNOSIDES A AND B
     Dosage: 8.6 MG, 3X/DAY(ONE TAB THREE TIMES A DAY/AM, NOON AND BEDTIME)
     Route: 048
     Dates: start: 20171009
  16. CALCIUM/MELATONIN/PYRIDOXINE HYDROCHLORIDE [Concomitant]
     Dosage: 1 MG, 1X/DAY(AT NOON)
     Route: 048
     Dates: start: 20160201
  17. DDAVP [Concomitant]
     Active Substance: DESMOPRESSIN ACETATE
     Dosage: 0.4 MG, 1X/DAY(TAKE 2 TABLETS AT BEDTIME)
     Route: 048
     Dates: start: 20170519

REACTIONS (3)
  - Abnormal behaviour [Recovered/Resolved]
  - Device issue [Recovered/Resolved]
  - Drug dose omission [Recovered/Resolved]
